FAERS Safety Report 4379370-9 (Version None)
Quarter: 2004Q2

REPORT INFORMATION
  Report Type: 
  Country: None (occurrence: None)
  Receive Date: 20040614
  Receipt Date: 20040528
  Transmission Date: 20050107
  Serious: Yes (Death, Life-Threatening, Hospitalization)
  Sender: FDA-Public Use
  Company Number: S04-USA-01886-01

PATIENT
  Age: 59 Year
  Sex: Male
  Weight: 88.4514 kg

DRUGS (6)
  1. NAMENDA [Suspect]
     Indication: DEMENTIA
     Dosage: 10 MG BID PO
     Route: 048
     Dates: start: 20040315, end: 20040329
  2. NAMENDA [Suspect]
     Indication: DEMENTIA
     Dosage: 5 MG BID PO
     Route: 048
     Dates: start: 20040301, end: 20040314
  3. ZYPREXA [Concomitant]
  4. DEPAKOTE [Concomitant]
  5. ANAFRANIL [Concomitant]
  6. KLONOPIN [Concomitant]

REACTIONS (7)
  - BLOOD UREA INCREASED [None]
  - DISORIENTATION [None]
  - DYSPHAGIA [None]
  - FALL [None]
  - MENTAL STATUS CHANGES [None]
  - NEUROLEPTIC MALIGNANT SYNDROME [None]
  - PNEUMONIA [None]
